FAERS Safety Report 6772597-8 (Version None)
Quarter: 2010Q2

REPORT INFORMATION
  Report Type: 
  Country: None (occurrence: None)
  Receive Date: 20100616
  Receipt Date: 20090720
  Transmission Date: 20101027
  Serious: No
  Sender: FDA-Public Use
  Company Number: US-ASTRAZENECA-2009SE05370

PATIENT
  Sex: Male
  Weight: 78.9 kg

DRUGS (1)
  1. PULMICORT RESPULES [Suspect]
     Indication: BRONCHITIS
     Dosage: 5 MG/ML
     Route: 055
     Dates: start: 20090101, end: 20090101

REACTIONS (3)
  - CHEST DISCOMFORT [None]
  - DRUG INEFFECTIVE [None]
  - DYSPNOEA [None]
